FAERS Safety Report 4405256-7 (Version None)
Quarter: 2004Q3

REPORT INFORMATION
  Report Type: 
  Country: None (occurrence: None)
  Receive Date: 20040723
  Receipt Date: 20040714
  Transmission Date: 20050211
  Serious: Yes (Death)
  Sender: FDA-Public Use
  Company Number: US-BRISTOL-MYERS SQUIBB COMPANY-12641056

PATIENT
  Age: 41 Year
  Sex: Male

DRUGS (7)
  1. ABILIFY [Suspect]
     Indication: SCHIZOPHRENIA, PARANOID TYPE
     Dosage: STARTED AT 15 MG/DAY ON 16-JUN-03, INC TO 20 MG/DAY IN NOV-03, THEN TO 30 MG/DAY ON 19-FEB-04.
     Dates: start: 20030616
  2. SEROQUEL [Suspect]
     Dosage: DOSE INCREASED FROM 600 MG TO 800 MG/DAY ON 11-JUN-04.
  3. ACIPHEX [Concomitant]
  4. TRAZODONE HCL [Concomitant]
     Dates: start: 20020501
  5. LISINOPRIL AND HYDROCHLOROTHIAZIDE [Concomitant]
     Dosage: 10/12.5 MG
     Dates: start: 20030701
  6. ANDROGEN [Concomitant]
     Dates: start: 20030601
  7. DOSTINEX [Concomitant]
     Dates: start: 20030801

REACTIONS (2)
  - CARDIAC ARREST [None]
  - HYPERTHERMIA [None]
